FAERS Safety Report 14989378 (Version 1)
Quarter: 2018Q2

REPORT INFORMATION
  Report Type: Spontaneous
  Country: US (occurrence: US)
  Receive Date: 20180608
  Receipt Date: 20180608
  Transmission Date: 20180711
  Serious: Yes (Other)
  Sender: FDA-Public Use
  Company Number: US-THE PROACTIV LLC-2049168

PATIENT
  Age: 17 Year
  Sex: Male

DRUGS (3)
  1. PROACTIV SOLUTION RENEWING CLEANSER [Suspect]
     Active Substance: BENZOYL PEROXIDE
     Indication: PRODUCT USED FOR UNKNOWN INDICATION
     Route: 061
     Dates: start: 20180420, end: 20180501
  2. PROACTIV REVITALIZING TONER (COSMETICS) [Suspect]
     Active Substance: COSMETICS
     Route: 061
     Dates: start: 20180420, end: 20180501
  3. PROACTIV REPAIRING TREATMENT [Suspect]
     Active Substance: BENZOYL PEROXIDE
     Route: 061
     Dates: start: 20180420, end: 20180501

REACTIONS (7)
  - Dyspnoea [Recovered/Resolved]
  - Application site swelling [None]
  - Hypersensitivity [Recovered/Resolved]
  - Swelling face [Recovered/Resolved]
  - Wrong technique in product usage process [None]
  - Acne [Recovered/Resolved]
  - Acne [None]

NARRATIVE: CASE EVENT DATE: 20180427
